FAERS Safety Report 10064456 (Version 1)
Quarter: 2014Q2

REPORT INFORMATION
  Report Type: Spontaneous
  Country: US (occurrence: None)
  Receive Date: 20140407
  Receipt Date: 20140407
  Transmission Date: 20141212
  Serious: Yes (Life-Threatening, Hospitalization)
  Sender: FDA-Public Use
  Company Number: None

PATIENT
  Age: 29 Year
  Sex: Female
  Weight: 77.11 kg

DRUGS (1)
  1. MIRALAX [Suspect]
     Indication: FAECES HARD
     Route: 048
     Dates: start: 20140401

REACTIONS (8)
  - Urticaria [None]
  - Rash erythematous [None]
  - Rash generalised [None]
  - Swollen tongue [None]
  - Chest discomfort [None]
  - Tachycardia [None]
  - Hypertension [None]
  - Ventricular extrasystoles [None]
